FAERS Safety Report 15422169 (Version 4)
Quarter: 2018Q4

REPORT INFORMATION
  Report Type: Spontaneous
  Country: NL (occurrence: NL)
  Receive Date: 20180924
  Receipt Date: 20181105
  Transmission Date: 20190204
  Serious: Yes (Other)
  Sender: FDA-Public Use
  Company Number: PHHY2018NL102335

PATIENT
  Age: 63 Year
  Sex: Female

DRUGS (20)
  1. METHOTREXATE. [Suspect]
     Active Substance: METHOTREXATE
     Indication: TRISMUS
  2. CYCLOPHOSPHAMIDE. [Suspect]
     Active Substance: CYCLOPHOSPHAMIDE
     Indication: BLINDNESS
  3. METHOTREXATE. [Suspect]
     Active Substance: METHOTREXATE
     Indication: IMMUNOGLOBULIN G4 RELATED DISEASE
     Dosage: UNK
     Route: 065
  4. PREDNISONE. [Suspect]
     Active Substance: PREDNISONE
     Indication: TRISMUS
  5. CICLOSPORIN [Suspect]
     Active Substance: CYCLOSPORINE
     Indication: IMMUNOGLOBULIN G4 RELATED DISEASE
     Dosage: UNK
     Route: 065
  6. CICLOSPORIN [Suspect]
     Active Substance: CYCLOSPORINE
     Indication: TRISMUS
  7. CYCLOPHOSPHAMIDE. [Suspect]
     Active Substance: CYCLOPHOSPHAMIDE
     Indication: TRISMUS
  8. INFLIXIMAB [Suspect]
     Active Substance: INFLIXIMAB
     Indication: BLINDNESS
  9. CICLOSPORIN [Suspect]
     Active Substance: CYCLOSPORINE
     Indication: EPILEPSY
  10. METHOTREXATE. [Suspect]
     Active Substance: METHOTREXATE
     Indication: EPILEPSY
  11. PREDNISONE. [Suspect]
     Active Substance: PREDNISONE
     Indication: EPILEPSY
  12. CYCLOPHOSPHAMIDE. [Suspect]
     Active Substance: CYCLOPHOSPHAMIDE
     Indication: EPILEPSY
  13. INFLIXIMAB [Suspect]
     Active Substance: INFLIXIMAB
     Indication: IMMUNOGLOBULIN G4 RELATED DISEASE
     Dosage: UNK
     Route: 065
  14. METHOTREXATE. [Suspect]
     Active Substance: METHOTREXATE
     Indication: BLINDNESS
  15. PREDNISONE. [Suspect]
     Active Substance: PREDNISONE
     Indication: IMMUNOGLOBULIN G4 RELATED DISEASE
     Dosage: UNK
     Route: 065
  16. INFLIXIMAB [Suspect]
     Active Substance: INFLIXIMAB
     Indication: EPILEPSY
  17. CICLOSPORIN [Suspect]
     Active Substance: CYCLOSPORINE
     Indication: BLINDNESS
  18. PREDNISONE. [Suspect]
     Active Substance: PREDNISONE
     Indication: BLINDNESS
  19. CYCLOPHOSPHAMIDE. [Suspect]
     Active Substance: CYCLOPHOSPHAMIDE
     Indication: IMMUNOGLOBULIN G4 RELATED DISEASE
     Dosage: UNK
     Route: 065
  20. INFLIXIMAB [Suspect]
     Active Substance: INFLIXIMAB
     Indication: TRISMUS

REACTIONS (7)
  - Disease recurrence [Unknown]
  - Rebound effect [Unknown]
  - Product use in unapproved indication [Unknown]
  - Treatment failure [Unknown]
  - Immunoglobulin G4 related disease [Unknown]
  - Diabetes mellitus [Unknown]
  - Off label use [Unknown]
